FAERS Safety Report 7638298-9 (Version None)
Quarter: 2011Q3

REPORT INFORMATION
  Report Type: 
  Country: None (occurrence: None)
  Receive Date: 20110727
  Receipt Date: 20110727
  Transmission Date: 20111222
  Serious: Yes (Hospitalization, Disabling, Other)
  Sender: FDA-Public Use
  Company Number: None

PATIENT
  Sex: Female
  Weight: 77.11 kg

DRUGS (1)
  1. BONIVA [Suspect]
     Indication: BONE DENSITY ABNORMAL
     Dosage: 1
     Dates: start: 20080102, end: 20110514

REACTIONS (1)
  - FEMUR FRACTURE [None]
